FAERS Safety Report 21501286 (Version 5)
Quarter: 2023Q1

REPORT INFORMATION
  Report Type: Spontaneous
  Country: PL (occurrence: PL)
  Receive Date: 20221025
  Receipt Date: 20230104
  Transmission Date: 20230418
  Serious: Yes (Other)
  Sender: FDA-Public Use
  Company Number: PL-Gedeon Richter Plc.-2022_GR_007959

PATIENT
  Age: 35 Year
  Sex: Female

DRUGS (9)
  1. MEBEVERINE [Interacting]
     Active Substance: MEBEVERINE
     Indication: Product used for unknown indication
     Dosage: 200 MILLIGRAM, TWO TIMES A DAY
     Route: 065
  2. MEBEVERINE [Interacting]
     Active Substance: MEBEVERINE
     Dosage: 200 MILLIGRAM, ONCE A DAY
     Route: 065
  3. MIRTAZAPINE [Interacting]
     Active Substance: MIRTAZAPINE
     Indication: Depression
     Dosage: 15 MILLIGRAM, ONCE A DAY (AT NIGHT)
     Route: 065
  4. PAROXETINE [Interacting]
     Active Substance: PAROXETINE
     Indication: Depression
     Dosage: 40 MILLIGRAM, ONCE A DAY (40MG/DAY IN THE MORNING)
     Route: 065
  5. ACETAMINOPHEN [Suspect]
     Active Substance: ACETAMINOPHEN
     Indication: Myalgia
     Dosage: UNK
     Route: 065
  6. METAMIZOLE [Suspect]
     Active Substance: METAMIZOLE
     Indication: Myalgia
     Dosage: UNK
     Route: 065
  7. TRIMEBUTINE MALEATE [Interacting]
     Active Substance: TRIMEBUTINE MALEATE
     Indication: Irritable bowel syndrome
     Dosage: 300 MILLIGRAM, ONCE A DAY
     Route: 065
  8. METFORMIN [Concomitant]
     Active Substance: METFORMIN HYDROCHLORIDE
     Indication: Irritable bowel syndrome
     Dosage: 2000 MILLIGRAM, ONCE A DAY
     Route: 065
  9. MEBEVERINE [Concomitant]
     Active Substance: MEBEVERINE
     Indication: Irritable bowel syndrome
     Dosage: 200 MILLIGRAM,400 MILLIGRAM DAILY; 2 X 200 MG/D
     Route: 065

REACTIONS (10)
  - Blood creatine phosphokinase increased [Unknown]
  - Neck pain [Unknown]
  - Myalgia [Recovered/Resolved]
  - Drug interaction [Unknown]
  - Musculoskeletal stiffness [Unknown]
  - Drug-disease interaction [Unknown]
  - Therapeutic product effect decreased [Unknown]
  - Loss of personal independence in daily activities [Unknown]
  - Weight increased [Unknown]
  - Drug ineffective [Unknown]
